FAERS Safety Report 24607482 (Version 1)
Quarter: 2024Q4

REPORT INFORMATION
  Report Type: Spontaneous
  Country: US (occurrence: US)
  Receive Date: 20241112
  Receipt Date: 20241112
  Transmission Date: 20250114
  Serious: Yes (Hospitalization, Other)
  Sender: ZYDUS PHARM
  Company Number: US-CADILA HEALTHCARE LIMITED-US-ZYDUS-114386

PATIENT

DRUGS (13)
  1. SPIRONOLACTONE [Suspect]
     Active Substance: SPIRONOLACTONE
     Indication: Chronic left ventricular failure
     Dosage: UNK
     Route: 065
  2. DOXORUBICIN [Suspect]
     Active Substance: DOXORUBICIN
     Indication: Leiomyosarcoma metastatic
     Dosage: UNK
     Route: 065
  3. TORSEMIDE [Suspect]
     Active Substance: TORSEMIDE
     Indication: Chronic left ventricular failure
     Dosage: UNK
     Route: 065
  4. DOCETAXEL [Concomitant]
     Active Substance: DOCETAXEL
     Indication: Leiomyosarcoma metastatic
     Dosage: UNK
     Route: 065
  5. PAZOPANIB [Concomitant]
     Active Substance: PAZOPANIB
     Indication: Leiomyosarcoma metastatic
     Dosage: UNK
     Route: 065
  6. GEMCITABINE [Concomitant]
     Active Substance: GEMCITABINE
     Indication: Leiomyosarcoma metastatic
     Dosage: UNK
     Route: 065
  7. AMIODARONE [Concomitant]
     Active Substance: AMIODARONE
     Indication: Chronic left ventricular failure
     Dosage: UNK
     Route: 065
  8. AMIODARONE [Concomitant]
     Active Substance: AMIODARONE
     Indication: Atrial fibrillation
  9. APIXABAN [Concomitant]
     Active Substance: APIXABAN
     Indication: Chronic left ventricular failure
     Dosage: UNK
     Route: 065
  10. APIXABAN [Concomitant]
     Active Substance: APIXABAN
     Indication: Atrial fibrillation
  11. ASPIRIN [Concomitant]
     Active Substance: ASPIRIN
     Indication: Chronic left ventricular failure
     Route: 065
  12. MILRINONE [Concomitant]
     Active Substance: MILRINONE
     Indication: Chronic left ventricular failure
     Dosage: UNK
     Route: 065
  13. ATORVASTATIN [Concomitant]
     Active Substance: ATORVASTATIN
     Indication: Chronic left ventricular failure
     Dosage: UNK
     Route: 065

REACTIONS (3)
  - Cardiac failure acute [Unknown]
  - Rebound effect [Unknown]
  - Cardiomyopathy [Unknown]
